FAERS Safety Report 16987481 (Version 2)
Quarter: 2019Q4

REPORT INFORMATION
  Report Type: Spontaneous
  Country: TW (occurrence: TW)
  Receive Date: 20191104
  Receipt Date: 20191212
  Transmission Date: 20200122
  Serious: Yes (Other)
  Sender: FDA-Public Use
  Company Number: TW-ALEXION-A201916614

PATIENT
  Age: 20 Year
  Sex: Male

DRUGS (3)
  1. ULTOMIRIS [Suspect]
     Active Substance: RAVULIZUMAB-CWVZ
     Indication: ATYPICAL HAEMOLYTIC URAEMIC SYNDROME
     Dosage: UNK X2 MONTHS
     Route: 065
  2. ULTOMIRIS [Suspect]
     Active Substance: RAVULIZUMAB-CWVZ
     Indication: OFF LABEL USE
  3. LUCENTIS [Concomitant]
     Active Substance: RANIBIZUMAB
     Indication: PRODUCT USED FOR UNKNOWN INDICATION
     Dosage: UNK, BOTH EYES
     Route: 065

REACTIONS (10)
  - Blindness [Unknown]
  - Tractional retinal detachment [Unknown]
  - Mydriasis [Unknown]
  - Neovascularisation [Unknown]
  - Retinal haemorrhage [Unknown]
  - Retinopathy proliferative [Unknown]
  - Swelling [Unknown]
  - Visual acuity reduced [Unknown]
  - Pupillary reflex impaired [Unknown]
  - Off label use [Unknown]
